FAERS Safety Report 8606209-5 (Version None)
Quarter: 2012Q3

REPORT INFORMATION
  Report Type: 
  Country: None (occurrence: None)
  Receive Date: 20120820
  Receipt Date: 20120809
  Transmission Date: 20120928
  Serious: Yes (Hospitalization)
  Sender: FDA-Public Use
  Company Number: US-ACTELION-A-NJ2012-69330

PATIENT
  Age: 71 Year
  Sex: Female

DRUGS (3)
  1. REMODULIN [Suspect]
     Dosage: UNK
     Dates: start: 20120701
  2. SILDENAFIL [Concomitant]
  3. TRACLEER [Suspect]
     Indication: PULMONARY ARTERIAL HYPERTENSION
     Dosage: UNK
     Route: 048

REACTIONS (5)
  - PYREXIA [None]
  - PNEUMONIA [None]
  - NAUSEA [None]
  - VOMITING [None]
  - MIGRAINE [None]
